FAERS Safety Report 9347686 (Version 1)
Quarter: 2013Q2

REPORT INFORMATION
  Report Type: Spontaneous
  Country: DE (occurrence: DE)
  Receive Date: 20130614
  Receipt Date: 20130614
  Transmission Date: 20140414
  Serious: Yes (Other)
  Sender: FDA-Public Use
  Company Number: DE-ROCHE-1235624

PATIENT
  Age: 37 Year
  Sex: Female

DRUGS (2)
  1. VEMURAFENIB [Suspect]
     Indication: METASTATIC MALIGNANT MELANOMA
     Route: 065
  2. VEMURAFENIB [Suspect]
     Route: 065

REACTIONS (5)
  - Melanocytic naevus [Recovering/Resolving]
  - Rash [Recovering/Resolving]
  - Malignant melanoma in situ [Recovering/Resolving]
  - Erythema nodosum [Recovering/Resolving]
  - Arthralgia [Recovering/Resolving]
